FAERS Safety Report 25274491 (Version 3)
Quarter: 2025Q2

REPORT INFORMATION
  Report Type: Spontaneous
  Country: US (occurrence: US)
  Receive Date: 20250506
  Receipt Date: 20250618
  Transmission Date: 20250716
  Serious: Yes (Hospitalization)
  Sender: SCA PHARMACEUTICALS, LITTLE ROCK, AR
  Company Number: US-SCA PHARMACEUTICALS-2025SCA00016

PATIENT
  Sex: Female

DRUGS (10)
  1. FENTANYL AND BUPIVACAINE [Suspect]
     Active Substance: BUPIVACAINE HYDROCHLORIDE\FENTANYL CITRATE
     Indication: Delivery
     Dosage: 12 ML/HR
     Route: 008
     Dates: start: 20250419, end: 20250420
  2. FENTANYL AND BUPIVACAINE [Suspect]
     Active Substance: BUPIVACAINE HYDROCHLORIDE\FENTANYL CITRATE
     Dosage: 9 ML/HR
     Route: 008
     Dates: start: 20250420, end: 20250420
  3. FENTANYL AND BUPIVACAINE [Suspect]
     Active Substance: BUPIVACAINE HYDROCHLORIDE\FENTANYL CITRATE
     Dosage: 6 ML/HR
     Route: 008
     Dates: start: 20250420, end: 20250420
  4. FENTANYL AND BUPIVACAINE [Suspect]
     Active Substance: BUPIVACAINE HYDROCHLORIDE\FENTANYL CITRATE
     Route: 008
     Dates: start: 20250420, end: 20250420
  5. AMPICILLIN [Concomitant]
     Active Substance: AMPICILLIN
     Route: 042
  6. GENTAMICIN [Concomitant]
     Active Substance: GENTAMICIN
     Route: 042
  7. PHENYLEPHRINE [Concomitant]
     Active Substance: PHENYLEPHRINE
     Route: 042
  8. METOCLOPRAMIDE [Concomitant]
     Active Substance: METOCLOPRAMIDE
  9. CITRIC ACID MONOHYDRATE\SODIUM CITRATE [Concomitant]
     Active Substance: CITRIC ACID MONOHYDRATE\SODIUM CITRATE
  10. LIDOCAINE 1.5 % 1:200,000 EPINEPHRINE [Concomitant]
     Route: 008

REACTIONS (6)
  - Hypoaesthesia [Not Recovered/Not Resolved]
  - Paraplegia [Not Recovered/Not Resolved]
  - Sensory loss [Not Recovered/Not Resolved]
  - Paraesthesia [Not Recovered/Not Resolved]
  - Guillain-Barre syndrome [Not Recovered/Not Resolved]
  - Idiosyncratic drug reaction [Not Recovered/Not Resolved]

NARRATIVE: CASE EVENT DATE: 20250101
